FAERS Safety Report 5046969-6 (Version None)
Quarter: 2006Q2

REPORT INFORMATION
  Report Type: 
  Country: None (occurrence: None)
  Receive Date: 20060630
  Receipt Date: 20060620
  Transmission Date: 20061013
  Serious: Yes (Hospitalization)
  Sender: FDA-Public Use
  Company Number: 2006052550

PATIENT
  Age: 52 Year
  Sex: Female

DRUGS (2)
  1. XALATAN [Suspect]
     Indication: GLAUCOMA
     Dosage: 3 MCG (3 MCG 1 D) OPTHALAMIC
     Route: 047
     Dates: start: 20010101
  2. RAMIPRIL [Concomitant]

REACTIONS (1)
  - PULMONARY EMBOLISM [None]
